FAERS Safety Report 7107920-8 (Version None)
Quarter: 2010Q4

REPORT INFORMATION
  Report Type: 
  Country: None (occurrence: None)
  Receive Date: 20101117
  Receipt Date: 20101108
  Transmission Date: 20110411
  Serious: Yes (Other)
  Sender: FDA-Public Use
  Company Number: AU-SANOFI-AVENTIS-2010SA067759

PATIENT
  Age: 62 Year
  Sex: Female

DRUGS (7)
  1. ARAVA [Suspect]
     Route: 048
     Dates: start: 20090226
  2. METHOTREXATE [Concomitant]
     Route: 065
  3. SULFASALAZINE [Concomitant]
     Route: 065
  4. FOLIC ACID [Concomitant]
     Route: 065
  5. VITAMIN D [Concomitant]
     Route: 065
  6. CALCIUM [Concomitant]
     Route: 065
  7. ZOLEDRONIC ACID [Concomitant]
     Route: 065

REACTIONS (3)
  - ANKLE FRACTURE [None]
  - RIB FRACTURE [None]
  - TIBIA FRACTURE [None]
